FAERS Safety Report 22586420 (Version 1)
Quarter: 2023Q2

REPORT INFORMATION
  Report Type: Spontaneous
  Country: US (occurrence: US)
  Receive Date: 20230611
  Receipt Date: 20230611
  Transmission Date: 20230722
  Serious: No
  Sender: FDA-Public Use
  Company Number: US-PERRIGO-22US009907

PATIENT
  Age: 74 Year
  Sex: Male
  Weight: 113.38 kg

DRUGS (8)
  1. DICLOFENAC SODIUM [Suspect]
     Active Substance: DICLOFENAC SODIUM
     Indication: Arthritis
     Dosage: DIME SIZED AMOUNT, 1-2 TIMES A WEEK
     Route: 061
     Dates: start: 202206, end: 202206
  2. VICODIN [Concomitant]
     Active Substance: ACETAMINOPHEN\HYDROCODONE BITARTRATE
     Indication: Pain
     Dosage: UNKNOWN, UNKNOWN
     Route: 065
     Dates: start: 2004
  3. VICODIN [Concomitant]
     Active Substance: ACETAMINOPHEN\HYDROCODONE BITARTRATE
     Indication: Exposure to toxic agent
  4. METFORMIN [Concomitant]
     Active Substance: METFORMIN HYDROCHLORIDE
     Indication: Blood glucose abnormal
     Dosage: UNKNOWN, UNKNOWN
     Route: 065
  5. METFORMIN [Concomitant]
     Active Substance: METFORMIN HYDROCHLORIDE
     Indication: Diabetes mellitus
  6. INSULIN NOS [Concomitant]
     Active Substance: INSULIN NOS
     Indication: Blood glucose abnormal
     Dosage: UNKNOWN, UNKNOWN
     Route: 065
  7. INSULIN NOS [Concomitant]
     Active Substance: INSULIN NOS
     Indication: Diabetes mellitus
  8. ASPIRIN [Concomitant]
     Active Substance: ASPIRIN
     Indication: Prophylaxis
     Dosage: UNKNOWN, UNKNOWN
     Route: 065
     Dates: start: 202202

REACTIONS (5)
  - Application site discomfort [Recovering/Resolving]
  - Application site vesicles [Recovering/Resolving]
  - Underdose [Unknown]
  - Inappropriate schedule of product administration [Recovering/Resolving]
  - Wrong technique in product usage process [Recovered/Resolved]

NARRATIVE: CASE EVENT DATE: 20220601
